FAERS Safety Report 7865270-6 (Version None)
Quarter: 2011Q4

REPORT INFORMATION
  Report Type: 
  Country: None (occurrence: None)
  Receive Date: 20111028
  Receipt Date: 20101112
  Transmission Date: 20120403
  Serious: No
  Sender: FDA-Public Use
  Company Number: US-GLAXOSMITHKLINE-A0892242A

PATIENT
  Age: 73 Year
  Sex: Female

DRUGS (8)
  1. ADVAIR DISKUS 100/50 [Suspect]
     Indication: CHRONIC OBSTRUCTIVE PULMONARY DISEASE
     Dosage: 1PUFF TWICE PER DAY
     Route: 055
     Dates: start: 20080301
  2. LASIX [Concomitant]
  3. VENTOLIN [Concomitant]
  4. PREVACID [Concomitant]
  5. BENICAR [Concomitant]
  6. CADUET [Concomitant]
  7. OXYGEN [Concomitant]
  8. STATINS [Concomitant]

REACTIONS (3)
  - MALAISE [None]
  - DYSPNOEA [None]
  - PRODUCT QUALITY ISSUE [None]
